FAERS Safety Report 23157919 (Version 1)
Quarter: 2023Q4

REPORT INFORMATION
  Report Type: Spontaneous
  Country: US (occurrence: US)
  Receive Date: 20231108
  Receipt Date: 20231108
  Transmission Date: 20240110
  Serious: Yes (Other)
  Sender: FDA-Public Use
  Company Number: US-009507513-2311USA001023

PATIENT
  Age: 60 Year
  Sex: Male

DRUGS (1)
  1. KEYTRUDA [Suspect]
     Active Substance: PEMBROLIZUMAB
     Indication: Nasopharyngeal cancer
     Dosage: 200 MILLIGRAM, Q3W

REACTIONS (1)
  - Lichen planus pemphigoides [Unknown]
